FAERS Safety Report 5935676-0 (Version None)
Quarter: 2008Q4

REPORT INFORMATION
  Report Type: 
  Country: None (occurrence: None)
  Receive Date: 20081029
  Receipt Date: 20081029
  Transmission Date: 20090506
  Serious: No
  Sender: FDA-Public Use
  Company Number: None

PATIENT
  Sex: Female
  Weight: 54.4316 kg

DRUGS (6)
  1. ELAVIL [Suspect]
     Indication: IRRITABLE BOWEL SYNDROME
     Dosage: 25MG DAILY PO
     Route: 048
     Dates: start: 20070911, end: 20080410
  2. ELAVIL [Suspect]
     Indication: MUSCLE SPASMS
     Dosage: 25MG DAILY PO
     Route: 048
     Dates: start: 20070911, end: 20080410
  3. ELAVIL [Suspect]
     Indication: SLEEP DISORDER
     Dosage: 25MG DAILY PO
     Route: 048
     Dates: start: 20070911, end: 20080410
  4. ELAVIL [Suspect]
     Indication: IRRITABLE BOWEL SYNDROME
     Dosage: 50 MG DAILY PO
     Route: 048
     Dates: start: 20080411, end: 20080921
  5. ELAVIL [Suspect]
     Indication: MUSCLE SPASMS
     Dosage: 50 MG DAILY PO
     Route: 048
     Dates: start: 20080411, end: 20080921
  6. ELAVIL [Suspect]
     Indication: SLEEP DISORDER
     Dosage: 50 MG DAILY PO
     Route: 048
     Dates: start: 20080411, end: 20080921

REACTIONS (21)
  - ABASIA [None]
  - ABNORMAL DREAMS [None]
  - AGGRESSION [None]
  - AGITATION [None]
  - AMNESIA [None]
  - ASTHENIA [None]
  - CONFUSIONAL STATE [None]
  - DISORIENTATION [None]
  - DROOLING [None]
  - DYSARTHRIA [None]
  - FEELING JITTERY [None]
  - HALLUCINATION [None]
  - HYPERSOMNIA [None]
  - INSOMNIA [None]
  - LETHARGY [None]
  - MENTAL DISORDER [None]
  - MOBILITY DECREASED [None]
  - NERVOUSNESS [None]
  - NIGHTMARE [None]
  - RESTLESSNESS [None]
  - SPEECH DISORDER [None]
